FAERS Safety Report 9631808 (Version 1)
Quarter: 2013Q4

REPORT INFORMATION
  Report Type: Spontaneous
  Country: DE (occurrence: None)
  Receive Date: 20131015
  Receipt Date: 20131015
  Transmission Date: 20140711
  Serious: Yes (Hospitalization)
  Sender: FDA-Public Use
  Company Number: FK201304502

PATIENT
  Age: 8 Year
  Sex: Female

DRUGS (3)
  1. CALCIUM GLUCONATE [Suspect]
     Indication: HYPOCALCAEMIA
     Route: 042
  2. DENOSUMAB [Suspect]
     Indication: HYPOCALCAEMIA
     Dosage: 0.5 MG/KG, 1ST DOSE, SUBCUTANEOUS
  3. COLECALCIFEROL [Concomitant]

REACTIONS (1)
  - Hypercalcaemia [None]
